FAERS Safety Report 9330590 (Version 1)
Quarter: 2013Q2

REPORT INFORMATION
  Report Type: Report from Study
  Country: BR (occurrence: BR)
  Receive Date: 20130605
  Receipt Date: 20130605
  Transmission Date: 20140414
  Serious: Yes (Other)
  Sender: FDA-Public Use
  Company Number: PHHY2013BR056506

PATIENT
  Age: 49 Year
  Sex: Male

DRUGS (1)
  1. DIOVAN AMLO FIX [Suspect]
     Indication: HYPERTENSION
     Dosage: 1 DF (160/5MG), DAILY
     Route: 048

REACTIONS (1)
  - Parkinson^s disease [Unknown]
